FAERS Safety Report 6385601-6 (Version None)
Quarter: 2009Q4

REPORT INFORMATION
  Report Type: 
  Country: None (occurrence: None)
  Receive Date: 20091002
  Receipt Date: 20081010
  Transmission Date: 20100525
  Serious: No
  Sender: FDA-Public Use
  Company Number: US-ASTRAZENECA-2008UW22360

PATIENT
  Age: 72 Year
  Sex: Female

DRUGS (8)
  1. ARIMIDEX [Suspect]
     Route: 048
  2. VERAPAMIL [Concomitant]
  3. PRAVASTATIN [Concomitant]
  4. BECONASE [Concomitant]
  5. CALCIUM [Concomitant]
  6. ASPIRIN [Concomitant]
  7. GLUCOSAMINE [Concomitant]
  8. MULTI-VITAMIN [Concomitant]

REACTIONS (1)
  - TENDON INJURY [None]
